FAERS Safety Report 13821453 (Version 11)
Quarter: 2018Q3

REPORT INFORMATION
  Report Type: Spontaneous
  Country: ES (occurrence: IT)
  Receive Date: 20170801
  Receipt Date: 20180808
  Transmission Date: 20181010
  Serious: Yes (Death, Other)
  Sender: FDA-Public Use
  Company Number: ES-009507513-1707ESP012412

PATIENT
  Age: 36 Year
  Sex: Male

DRUGS (14)
  1. PREGABALIN. [Suspect]
     Active Substance: PREGABALIN
     Dosage: UNK UNK,UNK
     Route: 065
  2. LEVOMEPROMAZINE [Suspect]
     Active Substance: LEVOMEPROMAZINE
     Dosage: UNK
  3. COCAINE [Suspect]
     Active Substance: COCAINE
     Dosage: UNK
  4. PREGABALIN. [Suspect]
     Active Substance: PREGABALIN
  5. ALPRAZOLAM. [Suspect]
     Active Substance: ALPRAZOLAM
     Dosage: UNK
  6. TRAZODONE HYDROCHLORIDE. [Suspect]
     Active Substance: TRAZODONE HYDROCHLORIDE
     Dosage: UNK
  7. MORPHINE [Suspect]
     Active Substance: MORPHINE
     Dosage: UNK
  8. CLONAZEPAM. [Suspect]
     Active Substance: CLONAZEPAM
     Dosage: UNK
  9. PREGABALIN. [Suspect]
     Active Substance: PREGABALIN
     Dosage: UNK
  10. CLONAZEPAM. [Suspect]
     Active Substance: CLONAZEPAM
     Dosage: UNK UNK,UNK
     Route: 065
  11. TRAZODONE HYDROCHLORIDE. [Suspect]
     Active Substance: TRAZODONE HYDROCHLORIDE
     Dosage: UNK UNK,UNK
     Route: 065
  12. MIRTAZAPINE. [Suspect]
     Active Substance: MIRTAZAPINE
     Dosage: UNK
     Route: 048
  13. COCAINE [Suspect]
     Active Substance: COCAINE
     Dosage: UNK UNK,UNK
     Route: 065
  14. ALCOHOL. [Suspect]
     Active Substance: ALCOHOL
     Dosage: UNK

REACTIONS (1)
  - Acute pulmonary oedema [Fatal]

NARRATIVE: CASE EVENT DATE: 201506
